FAERS Safety Report 4786863-9 (Version None)
Quarter: 2005Q4

REPORT INFORMATION
  Report Type: 
  Country: None (occurrence: None)
  Receive Date: 20051004
  Receipt Date: 20050922
  Transmission Date: 20060501
  Serious: Yes (Other)
  Sender: FDA-Public Use
  Company Number: 2005UW14290

PATIENT
  Age: 26 Year
  Sex: Male

DRUGS (1)
  1. SEROQUEL [Suspect]
     Route: 048

REACTIONS (4)
  - CHROMATURIA [None]
  - HEPATIC ENZYME INCREASED [None]
  - JAUNDICE [None]
  - PRURITUS [None]
